FAERS Safety Report 11882515 (Version 1)
Quarter: 2015Q4

REPORT INFORMATION
  Report Type: Spontaneous
  Country: BR (occurrence: BR)
  Receive Date: 20151231
  Receipt Date: 20151231
  Transmission Date: 20160305
  Serious: Yes (Other)
  Sender: FDA-Public Use
  Company Number: BR-JNJFOC-20151223871

PATIENT
  Age: 42 Year
  Sex: Male

DRUGS (2)
  1. REMICADE [Suspect]
     Active Substance: INFLIXIMAB
     Indication: COLITIS
     Route: 042
     Dates: start: 20141212, end: 20151228
  2. REMICADE [Suspect]
     Active Substance: INFLIXIMAB
     Indication: COLITIS
     Route: 042
     Dates: start: 20141212, end: 20151228

REACTIONS (3)
  - Intestinal operation [Unknown]
  - Postoperative wound infection [Unknown]
  - Furuncle [Unknown]

NARRATIVE: CASE EVENT DATE: 201512
